FAERS Safety Report 6727420-4 (Version None)
Quarter: 2010Q2

REPORT INFORMATION
  Report Type: 
  Country: None (occurrence: None)
  Receive Date: 20100517
  Receipt Date: 20100513
  Transmission Date: 20101027
  Serious: Yes (Death)
  Sender: FDA-Public Use
  Company Number: JP-SANOFI-AVENTIS-2010SA021048

PATIENT
  Age: 85 Year
  Sex: Male
  Weight: 72 kg

DRUGS (9)
  1. TAXOTERE [Suspect]
     Indication: PROSTATE CANCER RECURRENT
     Route: 051
     Dates: start: 20100330, end: 20100330
  2. WARFARIN SODIUM [Concomitant]
  3. PROTECADIN [Concomitant]
  4. HARNAL [Concomitant]
  5. PREDONINE [Concomitant]
  6. MAGNESIUM OXIDE [Concomitant]
  7. RAMELTEON [Concomitant]
  8. KETOPROFEN [Concomitant]
  9. GENTAMICIN [Concomitant]

REACTIONS (4)
  - ACIDOSIS [None]
  - FEBRILE NEUTROPENIA [None]
  - HYPERKALAEMIA [None]
  - RENAL FAILURE ACUTE [None]
